FAERS Safety Report 4864227-7 (Version None)
Quarter: 2005Q4

REPORT INFORMATION
  Report Type: 
  Country: None (occurrence: None)
  Receive Date: 20051222
  Receipt Date: 20051101
  Transmission Date: 20060501
  Serious: Yes (Death)
  Sender: FDA-Public Use
  Company Number: CA-SANOFI-SYNTHELABO-F01200502313

PATIENT
  Age: 55 Year
  Sex: Male

DRUGS (8)
  1. ELOXATIN [Suspect]
     Indication: COLON CANCER
     Route: 042
     Dates: start: 20050914, end: 20050914
  2. CELEXA [Concomitant]
     Dosage: 10 MG
     Route: 048
  3. NAPROSYN [Concomitant]
     Dosage: 1000 MG
     Route: 048
  4. PANTOPRAZOLE SODIUM [Concomitant]
     Dosage: 40 MG
     Route: 048
  5. FERROUS SULFATE TAB [Concomitant]
     Dosage: 600 MG
  6. RIVOTRIL [Concomitant]
     Dosage: 2 MG
     Route: 048
  7. IMODIUM [Concomitant]
     Dosage: 200 MG/2HRS
     Route: 048
  8. HYDROMORPH CONTIN [Concomitant]
     Dosage: 12 MG
     Route: 048

REACTIONS (6)
  - CACHEXIA [None]
  - COMA [None]
  - DEHYDRATION [None]
  - DIARRHOEA [None]
  - DYSAESTHESIA [None]
  - SHOCK [None]
